FAERS Safety Report 7532258-4 (Version None)
Quarter: 2011Q2

REPORT INFORMATION
  Report Type: 
  Country: None (occurrence: None)
  Receive Date: 20110608
  Receipt Date: 20101018
  Transmission Date: 20111010
  Serious: No
  Sender: FDA-Public Use
  Company Number: US-TEVA-245561USA

PATIENT
  Age: 55 Year
  Sex: Female

DRUGS (1)
  1. ENJUVIA [Suspect]
     Route: 048
     Dates: start: 20100617

REACTIONS (4)
  - HYPOAESTHESIA FACIAL [None]
  - HYPERSENSITIVITY [None]
  - FEELING HOT [None]
  - PARAESTHESIA [None]
